FAERS Safety Report 5721930-4 (Version None)
Quarter: 2008Q2

REPORT INFORMATION
  Report Type: 
  Country: None (occurrence: None)
  Receive Date: 20080429
  Receipt Date: 20080417
  Transmission Date: 20081010
  Serious: Yes (Other)
  Sender: FDA-Public Use
  Company Number: US-PFIZER INC-2008021430

PATIENT
  Sex: Female

DRUGS (1)
  1. TOLTERODINE LA [Suspect]

REACTIONS (3)
  - CARDIAC DISORDER [None]
  - HYPERSENSITIVITY [None]
  - RASH [None]
